FAERS Safety Report 4667199-3 (Version None)
Quarter: 2005Q2

REPORT INFORMATION
  Report Type: 
  Country: None (occurrence: None)
  Receive Date: 20050520
  Receipt Date: 20040604
  Transmission Date: 20051028
  Serious: No
  Sender: FDA-Public Use
  Company Number: US-BRISTOL-MYERS SQUIBB COMPANY-12606224

PATIENT
  Age: 80 Year
  Sex: Female
  Weight: 43 kg

DRUGS (4)
  1. SINEMET [Suspect]
     Indication: PARKINSON'S DISEASE
     Dosage: DOSAGE: 25MG/100MG RECENTLY CHANGED TO 4.5 TABLETS DAILY
     Route: 048
  2. FORTEO [Concomitant]
  3. ATENOLOL [Concomitant]
  4. SYNTHROID [Concomitant]

REACTIONS (3)
  - HOT FLUSH [None]
  - INSOMNIA [None]
  - WEIGHT DECREASED [None]
